FAERS Safety Report 26201612 (Version 1)
Quarter: 2025Q4

REPORT INFORMATION
  Report Type: Other
  Country: CN (occurrence: CN)
  Receive Date: 20251226
  Receipt Date: 20251226
  Transmission Date: 20260117
  Serious: Yes (Hospitalization, Other)
  Sender: QILU ANTIBIOTICS PHARMACEUTICAL
  Company Number: CN-QILU ANTIBIOTICS PHARMACEUTICAL CO.,LTD-QLA-000188-2025

PATIENT
  Age: 64 Year
  Sex: Male
  Weight: 64 kg

DRUGS (4)
  1. CEFAZOLIN [Suspect]
     Active Substance: CEFAZOLIN
     Indication: Cough
     Dosage: 1 G TWICE A DAY (EVERY 12 HOURS)
     Route: 041
     Dates: start: 20251026, end: 20251028
  2. CEFAZOLIN [Suspect]
     Active Substance: CEFAZOLIN
     Indication: Cough
  3. SODIUM CHLORIDE [Concomitant]
     Active Substance: SODIUM CHLORIDE
     Dosage: 100 ML
     Route: 041
     Dates: start: 20251026, end: 20251028
  4. SODIUM CHLORIDE [Concomitant]
     Active Substance: SODIUM CHLORIDE

REACTIONS (2)
  - Haemolytic anaemia [Recovering/Resolving]
  - Off label use [Recovered/Resolved]

NARRATIVE: CASE EVENT DATE: 20251026
